FAERS Safety Report 19812304 (Version 2)
Quarter: 2021Q3

REPORT INFORMATION
  Report Type: Report from Study
  Country: KR (occurrence: KR)
  Receive Date: 20210910
  Receipt Date: 20210924
  Transmission Date: 20211014
  Serious: Yes (Hospitalization)
  Sender: FDA-Public Use
  Company Number: KR-CELLTRION INC.-2021KR011687

PATIENT

DRUGS (11)
  1. HARNAL [Concomitant]
     Active Substance: TAMSULOSIN HYDROCHLORIDE
     Indication: BENIGN PROSTATIC HYPERPLASIA
     Dosage: 0.2 MG, QD
     Route: 048
     Dates: start: 2020
  2. TRUXIMA [Suspect]
     Active Substance: RITUXIMAB-ABBS
     Dosage: 712.5 MG (MIXED WITH 5% DEXTROSE 500 ML AND INJECTED INTRAVENOUSLY) TRUXIMA 500 MG (IBER: C2D1)
     Route: 042
     Dates: start: 20210729
  3. TRUXIMA [Suspect]
     Active Substance: RITUXIMAB-ABBS
     Dosage: C1D15 712.5MG (WAS MIXED WITH 5% DEXTROSE 500 ML AND INJECTED INTRAVENOUSLY) TRUXIMA 100MG
     Route: 042
     Dates: start: 20210722
  4. TRUXIMA [Suspect]
     Active Substance: RITUXIMAB-ABBS
     Dosage: 712.5 MG (MIXED WITH 5% DEXTROSE 500 ML AND INJECTED INTRAVENOUSLY) TRUXIMA 100 MG
     Route: 042
     Dates: start: 20210729
  5. TRUXIMA [Suspect]
     Active Substance: RITUXIMAB-ABBS
     Dosage: C1D15 712.5MG (WAS MIXED WITH 5% DEXTROSE 500 ML AND INJECTED INTRAVENOUSLY) TRUXIMA 500MG
     Route: 042
     Dates: start: 20210722
  6. TRUXIMA [Suspect]
     Active Substance: RITUXIMAB-ABBS
     Indication: B-CELL LYMPHOMA
     Dosage: 712.5 MG (WAS MIXED WITH 5% DEXTROSE 500 ML AND INJECTED INTRAVENOUSLY) TRUXIMA 100MG (IBER:C1D1)
     Route: 042
     Dates: start: 20210708
  7. TRUXIMA [Suspect]
     Active Substance: RITUXIMAB-ABBS
     Dosage: 712.5 MG (WAS MIXED WITH 5% DEXTROSE 500 ML AND INJECTED INTRAVENOUSLY) TRUXIMA 500 MG
     Route: 042
     Dates: start: 20210708
  8. TRUXIMA [Suspect]
     Active Substance: RITUXIMAB-ABBS
     Dosage: C1D8 712.5MG (WAS MIXED WITH 5% DEXTROSE 500 ML AND INJECTED INTRAVENOUSLY) TRUXIMA 500MG
     Route: 042
     Dates: start: 20210715
  9. INSULIN PUMP [Concomitant]
     Active Substance: DEVICE\INSULIN NOS
     Indication: DIABETES MELLITUS
     Dosage: UNK, PRN
     Route: 058
     Dates: start: 2014
  10. TRUXIMA [Suspect]
     Active Substance: RITUXIMAB-ABBS
     Dosage: 712.5 MG (MIXED WITH 5% DEXTROSE 500 ML AND INJECTED INTRAVENOUSLY) TRUXIMA 100 MG
     Route: 042
     Dates: start: 20210729
  11. TRUXIMA [Suspect]
     Active Substance: RITUXIMAB-ABBS
     Dosage: C1D8 712.5MG (WAS MIXED WITH 5% DEXTROSE 500 ML AND INJECTED INTRAVENOUSLY) TRUXIMA 100MG
     Route: 042
     Dates: start: 20210715

REACTIONS (2)
  - COVID-19 [Recovering/Resolving]
  - Underdose [Unknown]

NARRATIVE: CASE EVENT DATE: 20210820
